FAERS Safety Report 9553554 (Version 1)
Quarter: 2013Q2

REPORT INFORMATION
  Report Type: Spontaneous
  Country: US (occurrence: None)
  Receive Date: 20130507
  Receipt Date: 20130507
  Transmission Date: 20140414
  Serious: Yes (Other)
  Sender: FDA-Public Use
  Company Number: PHEH2012US022638

PATIENT
  Age: 59 Year
  Sex: Female

DRUGS (2)
  1. TASIGNA (AMN107) CAPSULE [Suspect]
     Indication: CHRONIC MYELOID LEUKAEMIA
     Route: 048
     Dates: start: 20111031, end: 20121022
  2. ZANTAC (RANITIDINE HYDROCHLORIDE) [Concomitant]

REACTIONS (8)
  - Chronic myeloid leukaemia [None]
  - Malignant neoplasm progression [None]
  - Splenomegaly [None]
  - Respiratory tract congestion [None]
  - Rash [None]
  - Chromosome analysis abnormal [None]
  - Dyspnoea [None]
  - Cough [None]
